FAERS Safety Report 10029485 (Version 1)
Quarter: 2014Q1

REPORT INFORMATION
  Report Type: Report from Study
  Country: US (occurrence: US)
  Receive Date: 20140322
  Receipt Date: 20140322
  Transmission Date: 20141002
  Serious: Yes (Other)
  Sender: FDA-Public Use
  Company Number: US-ROCHE-1365486

PATIENT
  Sex: Female
  Weight: 54.48 kg

DRUGS (2)
  1. AVASTIN [Suspect]
     Indication: OVARIAN CANCER
     Dosage: EVERY 3 WEEKS
     Route: 042
     Dates: end: 201302
  2. LOPRESSOR [Concomitant]
     Route: 065

REACTIONS (3)
  - Cell marker increased [Not Recovered/Not Resolved]
  - Hypertension [Not Recovered/Not Resolved]
  - Epistaxis [Not Recovered/Not Resolved]
